FAERS Safety Report 19412924 (Version 3)
Quarter: 2022Q3

REPORT INFORMATION
  Report Type: Spontaneous
  Country: US (occurrence: US)
  Receive Date: 20210614
  Receipt Date: 20220727
  Transmission Date: 20221027
  Serious: Yes (Hospitalization, Other)
  Sender: FDA-Public Use
  Company Number: US-PFIZER INC-2021313582

PATIENT
  Age: 58 Year
  Sex: Female

DRUGS (1)
  1. IBRANCE [Suspect]
     Active Substance: PALBOCICLIB
     Indication: Breast cancer female
     Dosage: 125 MG,  CYCLIC (1X/DAY (EVERY DAY (QD) FOR 21 DAYS/125 MG QD (EVERYDAY) X 21 DAYS REST 7)
     Route: 048
     Dates: start: 20210317

REACTIONS (13)
  - Thrombosis [Not Recovered/Not Resolved]
  - Peripheral swelling [Not Recovered/Not Resolved]
  - Dyspnoea [Unknown]
  - Pyrexia [Unknown]
  - Oxygen saturation decreased [Unknown]
  - Product dose omission issue [Unknown]
  - Alopecia [Not Recovered/Not Resolved]
  - Skin exfoliation [Unknown]
  - Limb discomfort [Unknown]
  - Illness [Unknown]
  - Vomiting [Unknown]
  - Nausea [Unknown]
  - Feeling cold [Not Recovered/Not Resolved]

NARRATIVE: CASE EVENT DATE: 20210101
